FAERS Safety Report 7244660-9 (Version None)
Quarter: 2011Q1

REPORT INFORMATION
  Report Type: 
  Country: None (occurrence: None)
  Receive Date: 20110125
  Receipt Date: 20101207
  Transmission Date: 20110831
  Serious: No
  Sender: FDA-Public Use
  Company Number: US-MYLANLABS-2010S1022603

PATIENT
  Age: 41 Year
  Sex: Female

DRUGS (2)
  1. BUPROPION HYDROCHLORIDE [Suspect]
     Indication: DEPRESSION
     Route: 048
     Dates: start: 20101116
  2. XANAX [Concomitant]
     Indication: ANXIETY

REACTIONS (3)
  - DRUG INEFFECTIVE [None]
  - ANXIETY [None]
  - MEDICATION RESIDUE [None]
